FAERS Safety Report 19908965 (Version 1)
Quarter: 2021Q4

REPORT INFORMATION
  Report Type: Other
  Country: US (occurrence: US)
  Receive Date: 20211001
  Receipt Date: 20211001
  Transmission Date: 20220303
  Serious: No
  Sender: FDA-Public Use
  Company Number: US-AMARIN PHARMA, INC.-2020AMR000713

PATIENT
  Age: 56 Year
  Sex: Female

DRUGS (3)
  1. VASCEPA [Suspect]
     Active Substance: ICOSAPENT ETHYL
     Indication: Blood triglycerides increased
     Route: 048
     Dates: start: 20200617, end: 20200810
  2. VASCEPA [Suspect]
     Active Substance: ICOSAPENT ETHYL
     Indication: Myocardial infarction
  3. VASCEPA [Suspect]
     Active Substance: ICOSAPENT ETHYL
     Indication: Arteriosclerosis coronary artery

REACTIONS (3)
  - Chest discomfort [Recovered/Resolved]
  - Chest pain [Recovered/Resolved]
  - Dyspepsia [Recovered/Resolved]

NARRATIVE: CASE EVENT DATE: 20200617
